FAERS Safety Report 7319656-9 (Version None)
Quarter: 2011Q1

REPORT INFORMATION
  Report Type: 
  Country: None (occurrence: None)
  Receive Date: 20110228
  Receipt Date: 20100625
  Transmission Date: 20110831
  Serious: No
  Sender: FDA-Public Use
  Company Number: A0868829A

PATIENT
  Age: 50 Year
  Sex: Female

DRUGS (2)
  1. LAMICTAL [Suspect]
     Indication: BIPOLAR DISORDER
     Dosage: 300MG UNKNOWN
     Route: 048
  2. TRAZODONE [Concomitant]
     Dosage: 200MG UNKNOWN

REACTIONS (6)
  - PHARYNGEAL ULCERATION [None]
  - OROPHARYNGEAL PAIN [None]
  - STOMATITIS [None]
  - ORAL DISORDER [None]
  - RASH GENERALISED [None]
  - OROPHARYNGEAL PLAQUE [None]
